FAERS Safety Report 7555562-2 (Version None)
Quarter: 2011Q2

REPORT INFORMATION
  Report Type: 
  Country: None (occurrence: None)
  Receive Date: 20110617
  Receipt Date: 20070904
  Transmission Date: 20111010
  Serious: Yes (Death, Hospitalization, Other)
  Sender: FDA-Public Use
  Company Number: PHEH2007US10161

PATIENT
  Sex: Male
  Weight: 72 kg

DRUGS (8)
  1. EXJADE [Suspect]
     Indication: IRON OVERLOAD
     Dosage: 1500 MG, QD
     Route: 048
     Dates: start: 20070402, end: 20070630
  2. OXYCODONE HCL [Concomitant]
     Dosage: 5-10 MG, PRN
  3. NORFLOXACIN [Concomitant]
     Dosage: 400 MG, BID
  4. VALTREX [Concomitant]
     Dosage: 500 MG, TID
  5. DYAZIDE [Concomitant]
     Dosage: UNK, QD
  6. LOPRESSOR [Concomitant]
     Dosage: 50 MG, QD
     Route: 048
  7. PROCARDIA XL [Concomitant]
     Dosage: 30 MG, QD
  8. CIPROFLOXACIN [Concomitant]
     Dosage: 400 MG, BID

REACTIONS (25)
  - NEUTROPHIL COUNT DECREASED [None]
  - PULMONARY MYCOSIS [None]
  - MOUTH ULCERATION [None]
  - METABOLIC ACIDOSIS [None]
  - PNEUMONIA [None]
  - OLIGURIA [None]
  - PLATELET COUNT DECREASED [None]
  - BLOOD CREATININE INCREASED [None]
  - PYREXIA [None]
  - RALES [None]
  - ORAL PAIN [None]
  - RENAL FAILURE ACUTE [None]
  - PULMONARY OEDEMA [None]
  - MYELODYSPLASTIC SYNDROME [None]
  - SINUSITIS [None]
  - OROPHARYNGEAL PLAQUE [None]
  - BONE MARROW FAILURE [None]
  - FEBRILE NEUTROPENIA [None]
  - PANCYTOPENIA [None]
  - OEDEMA PERIPHERAL [None]
  - ACUTE MYELOID LEUKAEMIA [None]
  - BLOOD UREA INCREASED [None]
  - DISEASE PROGRESSION [None]
  - ORAL FUNGAL INFECTION [None]
  - STOMATITIS [None]
